FAERS Safety Report 11529802 (Version 3)
Quarter: 2015Q3

REPORT INFORMATION
  Report Type: Spontaneous
  Country: US (occurrence: US)
  Receive Date: 20150921
  Receipt Date: 20150922
  Transmission Date: 20151125
  Serious: Yes (Other)
  Sender: FDA-Public Use
  Company Number: US-GLAXOSMITHKLINE-US2015GSK123862

PATIENT
  Age: 68 Year
  Sex: Female

DRUGS (3)
  1. ASTELIN [Concomitant]
     Active Substance: AZELASTINE HYDROCHLORIDE
  2. ADVAIR DISKUS [Suspect]
     Active Substance: FLUTICASONE PROPIONATE\SALMETEROL XINAFOATE
     Indication: CHRONIC OBSTRUCTIVE PULMONARY DISEASE
     Dosage: 1 PUFF(S), BID
     Route: 055
  3. ADVAIR DISKUS [Suspect]
     Active Substance: FLUTICASONE PROPIONATE\SALMETEROL XINAFOATE
     Indication: PARTIAL LUNG RESECTION
     Dosage: UNK
     Dates: start: 2007

REACTIONS (4)
  - Non-small cell lung cancer [Unknown]
  - Metastases to lung [Unknown]
  - Lung disorder [Unknown]
  - Biopsy lung [Unknown]

NARRATIVE: CASE EVENT DATE: 20150820
